FAERS Safety Report 18571015 (Version 1)
Quarter: 2020Q4

REPORT INFORMATION
  Report Type: Spontaneous
  Country: US (occurrence: US)
  Receive Date: 20201202
  Receipt Date: 20201202
  Transmission Date: 20210114
  Serious: No
  Sender: FDA-Public Use
  Company Number: US-NOVEN PHARMACEUTICALS, INC.-2020US004816

PATIENT
  Age: 52 Year
  Sex: Female
  Weight: 85.71 kg

DRUGS (3)
  1. AGX ESTRADIOL FOR MINIVELLE [Suspect]
     Active Substance: ESTRADIOL
     Indication: HOT FLUSH
     Dosage: HALF OF 0.0375 MG PATCH
     Route: 062
     Dates: start: 202006
  2. SYNTHROID [Concomitant]
     Active Substance: LEVOTHYROXINE SODIUM
     Indication: HYPOTHYROIDISM
     Dosage: UNK, DAILY
     Route: 048
  3. AGX ESTRADIOL FOR MINIVELLE [Suspect]
     Active Substance: ESTRADIOL
     Indication: MENOPAUSE
     Dosage: 0.0375 MG PATCH, UNK
     Route: 062
     Dates: end: 202004

REACTIONS (5)
  - Intentional product use issue [Recovered/Resolved]
  - No adverse event [Unknown]
  - Treatment noncompliance [Recovered/Resolved]
  - Wrong technique in product usage process [Not Recovered/Not Resolved]
  - Product adhesion issue [Recovered/Resolved]

NARRATIVE: CASE EVENT DATE: 202004
